FAERS Safety Report 16787267 (Version 5)
Quarter: 2024Q3

REPORT INFORMATION
  Report Type: Spontaneous
  Country: US (occurrence: US)
  Receive Date: 20190909
  Receipt Date: 20240902
  Transmission Date: 20241017
  Serious: Yes (Other)
  Sender: PFIZER
  Company Number: US-PFIZER INC-2019386805

PATIENT
  Age: 77 Year
  Sex: Female
  Weight: 60.3 kg

DRUGS (3)
  1. PREMARIN [Suspect]
     Active Substance: ESTROGENS, CONJUGATED
     Indication: Hysterectomy
     Dosage: 0.3 MG, 1X/DAY
  2. PREMARIN [Suspect]
     Active Substance: ESTROGENS, CONJUGATED
     Indication: Hormone replacement therapy
     Dosage: 0.3 MG, 1X/DAY
     Dates: start: 20170918
  3. PREMARIN [Suspect]
     Active Substance: ESTROGENS, CONJUGATED
     Indication: Hyperglycaemia

REACTIONS (4)
  - Blood glucose increased [Unknown]
  - Presyncope [Unknown]
  - Dizziness [Unknown]
  - Dehydration [Unknown]
